FAERS Safety Report 8339017-3 (Version None)
Quarter: 2012Q2

REPORT INFORMATION
  Report Type: 
  Country: None (occurrence: None)
  Receive Date: 20120507
  Receipt Date: 20120426
  Transmission Date: 20120825
  Serious: Yes (Hospitalization, Other)
  Sender: FDA-Public Use
  Company Number: US-RB-038873-12

PATIENT
  Age: 81 Year
  Sex: Male

DRUGS (4)
  1. GUAIFENESIN [Concomitant]
     Indication: PRODUCT USED FOR UNKNOWN INDICATION
     Dosage: TOOK 2 DOSES OF THE PRODUCT ON 20-APR-2012.
  2. NORVAST [Concomitant]
     Indication: PRODUCT USED FOR UNKNOWN INDICATION
  3. ZITHROMAX [Concomitant]
     Indication: PRODUCT USED FOR UNKNOWN INDICATION
  4. MUCINEX TABLETS [Suspect]
     Indication: PRODUCT USED FOR UNKNOWN INDICATION
     Route: 048
     Dates: start: 20120416

REACTIONS (4)
  - PALPITATIONS [None]
  - HEART RATE INCREASED [None]
  - HYPERTENSION [None]
  - TACHYCARDIA [None]
